FAERS Safety Report 9059916 (Version 2)
Quarter: 2013Q2

REPORT INFORMATION
  Report Type: Spontaneous
  Country: US (occurrence: None)
  Receive Date: 20130118
  Receipt Date: 20130503
  Transmission Date: 20140414
  Serious: Yes (Death)
  Sender: FDA-Public Use
  Company Number: IPN-00001

PATIENT
  Age: 59 Year
  Sex: Male

DRUGS (7)
  1. PROPRANOLOL [Suspect]
  2. MORPHINE [Suspect]
  3. HYDROMORPHONE [Suspect]
  4. ALPRAZOLAM [Suspect]
  5. MIRTAZAPINE [Suspect]
  6. DULOXETINE [Suspect]
  7. METOPROLOL [Suspect]

REACTIONS (2)
  - Cardiac arrest [None]
  - Respiratory arrest [None]
